FAERS Safety Report 6984130-6 (Version None)
Quarter: 2010Q3

REPORT INFORMATION
  Report Type: 
  Country: None (occurrence: None)
  Receive Date: 20100915
  Receipt Date: 20090526
  Transmission Date: 20110219
  Serious: No
  Sender: FDA-Public Use
  Company Number: US-WYE-H09489309

PATIENT
  Sex: Female
  Weight: 83.99 kg

DRUGS (6)
  1. PRISTIQ [Suspect]
     Indication: DEPRESSION
     Route: 048
     Dates: start: 20090521, end: 20090522
  2. AMFEBUTAMONE [Concomitant]
  3. NORVASC [Concomitant]
  4. DIOVAN HCT [Concomitant]
  5. ACETYLSALICYLIC ACID [Concomitant]
  6. METOPROLOL TARTRATE [Concomitant]

REACTIONS (3)
  - CONDITION AGGRAVATED [None]
  - HYPERTENSION [None]
  - PALPITATIONS [None]
